FAERS Safety Report 12905268 (Version 1)
Quarter: 2016Q4

REPORT INFORMATION
  Report Type: Other
  Country: TR (occurrence: TR)
  Receive Date: 20161103
  Receipt Date: 20161103
  Transmission Date: 20170207
  Serious: Yes (Other)
  Sender: FDA-Public Use
  Company Number: TR-JUBILANT GENERICS LIMITED-1059178

PATIENT
  Age: 49 Year
  Sex: Female

DRUGS (9)
  1. CLOZAPINE. [Suspect]
     Active Substance: CLOZAPINE
  2. AMISULPIRIDE [Concomitant]
  3. VALPROIC ACID. [Concomitant]
     Active Substance: VALPROIC ACID
  4. BORNAPRINE [Concomitant]
  5. RISPERIDONE. [Concomitant]
     Active Substance: RISPERIDONE
  6. OLANZAPINE. [Suspect]
     Active Substance: OLANZAPINE
  7. RISPERIDONE DEPOT [Concomitant]
     Active Substance: RISPERIDONE
  8. QUETIAPINE. [Concomitant]
     Active Substance: QUETIAPINE
  9. PERINDOPRIL ARGININE [Concomitant]
     Active Substance: PERINDOPRIL ARGININE

REACTIONS (1)
  - Atrial fibrillation [Recovered/Resolved]

NARRATIVE: CASE EVENT DATE: 20161017
